FAERS Safety Report 26054323 (Version 1)
Quarter: 2025Q4

REPORT INFORMATION
  Report Type: Spontaneous
  Country: NZ (occurrence: NZ)
  Receive Date: 20251117
  Receipt Date: 20251117
  Transmission Date: 20260117
  Serious: Yes (Other)
  Sender: SANDOZ
  Company Number: NZ-SANDOZ-SDZ2025NZ084622

PATIENT
  Sex: Female

DRUGS (1)
  1. ESTRADIOL [Suspect]
     Active Substance: ESTRADIOL
     Indication: Product used for unknown indication
     Dosage: 75 MCG/24H TRANSDERMAL PATCH
     Route: 065

REACTIONS (4)
  - Depression [Unknown]
  - Condition aggravated [Unknown]
  - Tearfulness [Unknown]
  - Anger [Unknown]
